FAERS Safety Report 8319612-8 (Version None)
Quarter: 2012Q2

REPORT INFORMATION
  Report Type: 
  Country: None (occurrence: None)
  Receive Date: 20120427
  Receipt Date: 20120417
  Transmission Date: 20120825
  Serious: Yes (Hospitalization)
  Sender: FDA-Public Use
  Company Number: PHHY2012IN032880

PATIENT
  Age: 68 Year
  Sex: Female

DRUGS (2)
  1. ONBREZ [Suspect]
     Dosage: UNK
  2. ONBREZ [Suspect]
     Indication: CHRONIC OBSTRUCTIVE PULMONARY DISEASE
     Dosage: 300 UG,
     Dates: start: 20120107

REACTIONS (3)
  - PYREXIA [None]
  - BLOOD SODIUM DECREASED [None]
  - MALAISE [None]
